FAERS Safety Report 10351254 (Version 2)
Quarter: 2014Q3

REPORT INFORMATION
  Report Type: Spontaneous
  Country: US (occurrence: US)
  Receive Date: 20140730
  Receipt Date: 20140730
  Transmission Date: 20150326
  Serious: Yes (Hospitalization, Other)
  Sender: FDA-Public Use
  Company Number: US-009507513-2011SP035868

PATIENT
  Sex: Female
  Weight: 72.58 kg

DRUGS (2)
  1. NUVARING [Suspect]
     Active Substance: ETHINYL ESTRADIOL\ETONOGESTREL
     Dates: start: 200905, end: 200908
  2. NUVARING [Suspect]
     Active Substance: ETHINYL ESTRADIOL\ETONOGESTREL
     Indication: HAEMORRHAGE
     Dates: start: 200812, end: 200902

REACTIONS (16)
  - Adenoma benign [Unknown]
  - Pneumonia [Unknown]
  - Deep vein thrombosis [Unknown]
  - Dermatitis atopic [Unknown]
  - Hypokalaemia [Unknown]
  - Anaemia [Unknown]
  - Depression [Unknown]
  - Pulmonary embolism [Unknown]
  - Palpitations [Unknown]
  - Heart rate irregular [Unknown]
  - Varicose vein [Unknown]
  - Cardiovascular disorder [Unknown]
  - Leiomyoma [Unknown]
  - Inappropriate schedule of drug administration [Unknown]
  - Thrombophlebitis superficial [Unknown]
  - Off label use [Unknown]

NARRATIVE: CASE EVENT DATE: 200812
